FAERS Safety Report 7821124-2 (Version None)
Quarter: 2011Q4

REPORT INFORMATION
  Report Type: 
  Country: None (occurrence: None)
  Receive Date: 20111018
  Receipt Date: 20111014
  Transmission Date: 20120403
  Serious: No
  Sender: FDA-Public Use
  Company Number: US-PFIZER INC-2011246992

PATIENT
  Age: 64 Year
  Sex: Female
  Weight: 52.154 kg

DRUGS (2)
  1. IBUPROFEN (ADVIL) [Suspect]
     Indication: HEADACHE
     Dosage: 400 MG, 2X/DAY
     Dates: start: 20111009, end: 20111010
  2. AMLODIPINE BESILATE [Concomitant]
     Indication: HYPERTENSION
     Dosage: 2.5 MG, DAILY

REACTIONS (3)
  - OVERDOSE [None]
  - PRURITUS GENERALISED [None]
  - RASH ERYTHEMATOUS [None]
